FAERS Safety Report 15135235 (Version 1)
Quarter: 2018Q3

REPORT INFORMATION
  Report Type: Spontaneous
  Country: CA (occurrence: CA)
  Receive Date: 20180616
  Receipt Date: 20180616
  Transmission Date: 20181010
  Serious: Yes (Hospitalization)
  Sender: FDA-Public Use
  Company Number: None

PATIENT
  Age: 70 Year
  Sex: Male
  Weight: 98.4 kg

DRUGS (11)
  1. NEXAVAR [Suspect]
     Active Substance: SORAFENIB
     Dates: end: 20180605
  2. PANTOPRAZOLE [Concomitant]
     Active Substance: PANTOPRAZOLE
  3. ALDACTONE [Concomitant]
     Active Substance: SPIRONOLACTONE
  4. SENNEKOT [Concomitant]
  5. ADVAIR HFA [Concomitant]
     Active Substance: FLUTICASONE PROPIONATE\SALMETEROL XINAFOATE
  6. VENTOLIN [Concomitant]
     Active Substance: ALBUTEROL SULFATE
  7. IRON TABS [Concomitant]
  8. RISIDRONATE [Concomitant]
  9. HYDROMORPHONE [Concomitant]
     Active Substance: HYDROMORPHONE
  10. LACTULOSE. [Concomitant]
     Active Substance: LACTULOSE
  11. DOUCOSATE [Concomitant]

REACTIONS (2)
  - Hospitalisation [None]
  - Fall [None]

NARRATIVE: CASE EVENT DATE: 20180605
